FAERS Safety Report 5976639-9 (Version None)
Quarter: 2008Q4

REPORT INFORMATION
  Report Type: 
  Country: None (occurrence: None)
  Receive Date: 20081202
  Receipt Date: 20081202
  Transmission Date: 20090506
  Serious: Yes (Disabling)
  Sender: FDA-Public Use
  Company Number: None

PATIENT
  Age: 70 Year
  Sex: Male
  Weight: 67.586 kg

DRUGS (1)
  1. VARENICLINE 0.5 MG PFIZER [Suspect]
     Indication: SMOKING CESSATION THERAPY

REACTIONS (4)
  - ABDOMINAL PAIN [None]
  - INCORRECT DOSE ADMINISTERED [None]
  - MEDICATION ERROR [None]
  - NIGHTMARE [None]
